FAERS Safety Report 9660680 (Version 2)
Quarter: 2013Q4

REPORT INFORMATION
  Report Type: Report from Study
  Country: AU (occurrence: AU)
  Receive Date: 20131031
  Receipt Date: 20131031
  Transmission Date: 20140711
  Serious: Yes (Hospitalization)
  Sender: FDA-Public Use
  Company Number: AU-ASTRAZENECA-2013SE69961

PATIENT
  Age: 63 Year
  Sex: Female

DRUGS (1)
  1. ARIMIDEX [Suspect]
     Route: 048
     Dates: start: 20100101

REACTIONS (12)
  - Hot flush [Not Recovered/Not Resolved]
  - Arthralgia [Not Recovered/Not Resolved]
  - Rash [Not Recovered/Not Resolved]
  - Osteopenia [Unknown]
  - Wrist fracture [Unknown]
  - Thrombosis [Unknown]
  - General physical health deterioration [Unknown]
  - Antiphospholipid syndrome [Unknown]
  - Fall [Unknown]
  - Pyrexia [Unknown]
  - Cystitis [Unknown]
  - Kidney infection [Unknown]
